FAERS Safety Report 8513190-6 (Version None)
Quarter: 2012Q3

REPORT INFORMATION
  Report Type: 
  Country: None (occurrence: None)
  Receive Date: 20120716
  Receipt Date: 20120711
  Transmission Date: 20120928
  Serious: Yes (Death, Hospitalization, Other)
  Sender: FDA-Public Use
  Company Number: US-ROCHE-1051840

PATIENT
  Sex: Male
  Weight: 68 kg

DRUGS (32)
  1. KEPPRA [Concomitant]
     Indication: PROPHYLAXIS
     Route: 048
     Dates: start: 20120201
  2. LISINOPRIL [Concomitant]
     Route: 048
     Dates: start: 20120501, end: 20120510
  3. DOCUSATE [Concomitant]
     Route: 048
     Dates: start: 20120501, end: 20120510
  4. SODIUM CHLORIDE [Concomitant]
     Indication: PROPHYLAXIS
     Dosage: CONTINUOUS
     Route: 042
     Dates: start: 20120420, end: 20120423
  5. DEXTROSE/POTASSIUM CHLORIDE [Concomitant]
     Dosage: 75 ML/HR
     Route: 041
     Dates: start: 20120305, end: 20120310
  6. ZANTAC [Concomitant]
     Indication: PROPHYLAXIS
     Route: 048
     Dates: start: 20120101
  7. ESOMEPRAZOLE [Concomitant]
     Indication: PROPHYLAXIS
     Route: 048
     Dates: start: 20120420, end: 20120510
  8. PHENYTOIN SODIUM [Concomitant]
     Indication: PROPHYLAXIS
     Route: 042
     Dates: start: 20120424, end: 20120424
  9. MORPHINE [Concomitant]
     Indication: PAIN
     Route: 042
     Dates: start: 20120510, end: 20120512
  10. VEMURAFENIB [Suspect]
     Indication: MALIGNANT MELANOMA
     Dosage: LAST DOSE PRIOR TO SAE ON 14/MAR/2012. DOSE INTERRUPTED ON 14/MAR/2012
     Route: 048
     Dates: start: 20120208, end: 20120314
  11. VEMURAFENIB [Suspect]
     Route: 048
     Dates: start: 20120404
  12. DEXAMETHASONE [Suspect]
     Indication: METASTASES TO CENTRAL NERVOUS SYSTEM
     Route: 048
     Dates: start: 20120202
  13. OMEPRAZOLE [Concomitant]
     Indication: PROPHYLAXIS
     Route: 048
     Dates: start: 20120202, end: 20120208
  14. KEPPRA [Concomitant]
     Dosage: CONTINUOUS
     Route: 042
     Dates: start: 20120420, end: 20120424
  15. DOCUSATE [Concomitant]
     Indication: PROPHYLAXIS
     Route: 048
     Dates: start: 20120319, end: 20120322
  16. LISPRO INSULIN [Concomitant]
     Dates: start: 20120319, end: 20120322
  17. ESMOLOL HCL [Concomitant]
     Dosage: CONTINUOUS
     Route: 042
     Dates: start: 20120420, end: 20120420
  18. HYDRALAZINE HYDROCHLORIDE [Concomitant]
     Route: 048
     Dates: start: 20120501, end: 20120510
  19. ACETAMINOPHEN [Concomitant]
     Dosage: AS REQUIRED
     Route: 048
     Dates: start: 20010101
  20. OMEPRAZOLE [Concomitant]
     Route: 048
     Dates: start: 20120208
  21. KEPPRA [Concomitant]
     Route: 048
     Dates: start: 20120424, end: 20120510
  22. LISPRO INSULIN [Concomitant]
     Dosage: SLIDING SCALE
     Route: 058
     Dates: start: 20120319, end: 20120322
  23. PHENYTOIN SODIUM [Concomitant]
     Route: 042
     Dates: start: 20120424, end: 20120510
  24. FAMOTIDINE [Concomitant]
     Indication: PROPHYLAXIS
     Route: 048
     Dates: start: 20120501, end: 20120510
  25. NYSTATIN [Concomitant]
     Indication: PROPHYLAXIS
     Route: 048
     Dates: start: 20120501, end: 20120510
  26. HEPARIN LOCK-FLUSH [Concomitant]
     Indication: PROPHYLAXIS
     Route: 042
     Dates: start: 20120319
  27. ACTIVASE [Concomitant]
     Indication: PROPHYLAXIS
     Dosage: SINGLE DOSE
     Route: 042
     Dates: start: 20120424, end: 20120424
  28. METOPROLOL TARTRATE [Concomitant]
     Route: 048
     Dates: start: 20120501, end: 20120510
  29. CARDENE [Concomitant]
     Dosage: 4 MG/HR CONTINUOUS
     Route: 042
     Dates: start: 20120420, end: 20120420
  30. VICODIN [Concomitant]
     Dosage: TOTAL DAILY DOSE: 500/50MG AS REQUIRED
     Route: 048
     Dates: start: 20120101
  31. LISINOPRIL [Concomitant]
     Route: 048
     Dates: start: 20100101
  32. LEVOFLOXACIN [Concomitant]
     Dates: start: 20120314, end: 20120319

REACTIONS (5)
  - HAEMORRHAGE [None]
  - OSTEOMYELITIS [None]
  - HAEMORRHAGE INTRACRANIAL [None]
  - CONVULSION [None]
  - BRAIN OEDEMA [None]
